FAERS Safety Report 6700296-7 (Version None)
Quarter: 2010Q2

REPORT INFORMATION
  Report Type: 
  Country: None (occurrence: None)
  Receive Date: 20100428
  Receipt Date: 20081208
  Transmission Date: 20101027
  Serious: Yes (Death, Hospitalization)
  Sender: FDA-Public Use
  Company Number: UA-PFIZER INC-2008048007

PATIENT
  Age: 56 Year
  Sex: Male
  Weight: 63 kg

DRUGS (12)
  1. SUNITINIB MALATE [Suspect]
     Indication: COLORECTAL CANCER
     Dosage: 37.5 MG, 1X/DAY
     Route: 048
     Dates: start: 20071129, end: 20080319
  2. SUNITINIB MALATE [Suspect]
     Dosage: 25 MG, 1X/DAY
     Route: 048
     Dates: start: 20080423, end: 20080520
  3. IRINOTECAN HCL [Suspect]
     Indication: COLORECTAL CANCER
     Dosage: 315 MG; 1 EVERY 2 WEEKS
     Route: 042
     Dates: start: 20071129, end: 20080306
  4. IRINOTECAN HCL [Suspect]
     Dosage: 248 MG, 1 EVERY 2 WEEKS
     Route: 042
     Dates: start: 20080321, end: 20080423
  5. FLUOROURACIL [Suspect]
     Indication: COLORECTAL CANCER
     Dosage: 700 MG LOADING: 1 EVERY 2 WEEKS
     Route: 042
     Dates: start: 20071129, end: 20080306
  6. FLUOROURACIL [Suspect]
     Dosage: 4200 MG INFUSION: 1 EVERY 2 WEEKS
     Route: 042
     Dates: start: 20071129, end: 20080308
  7. FLUOROURACIL [Suspect]
     Dosage: 550 MG LOADING 1 EVERY 2 WEEKS
     Route: 042
     Dates: start: 20080321, end: 20080423
  8. FLUOROURACIL [Suspect]
     Dosage: 3302 MG, INFUSION 1 EVERY 2 WEEKS
     Route: 042
     Dates: start: 20080321, end: 20080425
  9. *CALCIUM FOLINATE [Suspect]
     Indication: COLORECTAL CANCER
     Dosage: 700 MG, UNK
     Route: 042
     Dates: start: 20071129, end: 20080423
  10. ESSENTIALE [Concomitant]
     Indication: HEPATITIS B
     Dosage: 2
     Dates: start: 20080415
  11. VITAMIN B1 TAB [Concomitant]
     Indication: HEPATITIS B
     Dosage: 1 ML, 1X/DAY
     Dates: start: 20080415
  12. VITAMIN B6 [Concomitant]
     Indication: HEPATITIS B
     Dosage: 1 ML, 1X/DAY
     Dates: start: 20080415

REACTIONS (3)
  - COLORECTAL CANCER [None]
  - DISEASE PROGRESSION [None]
  - TUMOUR LYSIS SYNDROME [None]
